FAERS Safety Report 14837364 (Version 2)
Quarter: 2018Q4

REPORT INFORMATION
  Report Type: Spontaneous
  Country: FR (occurrence: FR)
  Receive Date: 20180502
  Receipt Date: 20181203
  Transmission Date: 20190204
  Serious: Yes (Other)
  Sender: FDA-Public Use
  Company Number: FR-MERCK KGAA-2047003

PATIENT
  Age: 73 Year
  Sex: Female
  Weight: 80 kg

DRUGS (2)
  1. EUTHYROX [Suspect]
     Active Substance: LEVOTHYROXINE SODIUM
     Indication: POST PROCEDURAL HYPOTHYROIDISM
     Route: 048
     Dates: start: 2017, end: 2017
  2. EUTHYROX 100 NF [Suspect]
     Active Substance: LEVOTHYROXINE SODIUM
     Route: 048
     Dates: start: 2017, end: 2017

REACTIONS (13)
  - Tetanus [None]
  - Social avoidant behaviour [None]
  - Emotional distress [None]
  - Irritability [None]
  - Stress [None]
  - Fatigue [None]
  - Insomnia [None]
  - Depression [None]
  - Anxiety [None]
  - Decreased interest [None]
  - Personal relationship issue [None]
  - Abnormal behaviour [None]
  - Muscle spasms [None]

NARRATIVE: CASE EVENT DATE: 2017
